FAERS Safety Report 10311877 (Version 1)
Quarter: 2014Q3

REPORT INFORMATION
  Report Type: Report from Study
  Country: US (occurrence: US)
  Receive Date: 20140717
  Receipt Date: 20140717
  Transmission Date: 20150326
  Serious: Yes (Hospitalization, Other)
  Sender: FDA-Public Use
  Company Number: US-ABBVIE-14P-163-1257487-00

PATIENT
  Age: 25 Year
  Sex: Female

DRUGS (4)
  1. HUMIRA [Suspect]
     Active Substance: ADALIMUMAB
     Dates: start: 20131205
  2. UNKNOWN MEDICATION [Suspect]
     Active Substance: UNSPECIFIED INGREDIENT
     Indication: PRODUCT USED FOR UNKNOWN INDICATION
  3. DEPOPROVERA [Concomitant]
     Indication: CONTRACEPTION
  4. HUMIRA [Suspect]
     Active Substance: ADALIMUMAB
     Indication: PSORIASIS
     Dates: start: 20130319, end: 20130822

REACTIONS (16)
  - Asthenia [Not Recovered/Not Resolved]
  - Malaise [Recovered/Resolved]
  - Herpes virus infection [Unknown]
  - Rash [Unknown]
  - Nightmare [Unknown]
  - Pyrexia [Unknown]
  - Dehydration [Not Recovered/Not Resolved]
  - Hypophagia [Recovered/Resolved]
  - Fluid intake reduced [Unknown]
  - Malaise [Unknown]
  - Urosepsis [Unknown]
  - Malaise [Not Recovered/Not Resolved]
  - Panic attack [Unknown]
  - Menorrhagia [Unknown]
  - Skin disorder [Unknown]
  - Fatigue [Not Recovered/Not Resolved]

NARRATIVE: CASE EVENT DATE: 201406
